FAERS Safety Report 23865459 (Version 2)
Quarter: 2024Q2

REPORT INFORMATION
  Report Type: Spontaneous
  Country: US (occurrence: US)
  Receive Date: 20240517
  Receipt Date: 20240520
  Transmission Date: 20240716
  Serious: No
  Sender: FDA-Public Use
  Company Number: US-ALKERMES INC.-ALK-2024-001246

PATIENT
  Age: 34 Year
  Sex: Male

DRUGS (3)
  1. ARISTADA [Suspect]
     Active Substance: ARIPIPRAZOLE LAUROXIL
     Indication: Product used for unknown indication
     Dosage: 882 MILLIGRAM, Q4WK
     Route: 030
     Dates: start: 20220824
  2. OLANZAPINE [Concomitant]
     Active Substance: OLANZAPINE
     Indication: Product used for unknown indication
     Dosage: 20 MILLIGRAM, QD
     Route: 065
  3. ABILIFY [Concomitant]
     Active Substance: ARIPIPRAZOLE
     Dosage: UNK
     Route: 048
     Dates: start: 202405

REACTIONS (8)
  - Psychiatric decompensation [Unknown]
  - Needle issue [Recovered/Resolved]
  - Product physical consistency issue [Recovered/Resolved]
  - Product dose omission issue [Unknown]
  - Therapeutic response shortened [Unknown]
  - Agitation [Unknown]
  - Nystagmus [Unknown]
  - Anxiety [Unknown]

NARRATIVE: CASE EVENT DATE: 20240502
